FAERS Safety Report 4524532-0 (Version None)
Quarter: 2004Q4

REPORT INFORMATION
  Report Type: 
  Country: None (occurrence: None)
  Receive Date: 20041117
  Receipt Date: 20040330
  Transmission Date: 20050328
  Serious: Yes (Hospitalization)
  Sender: FDA-Public Use
  Company Number: US-JNJFOC-20040105435

PATIENT
  Age: 76 Year
  Sex: Female

DRUGS (6)
  1. LEVAQUIN [Suspect]
     Dosage: 500 MG, 1 IN 1 DAY, ORAL
     Route: 048
     Dates: start: 20040114, end: 20040121
  2. BETAPACE [Concomitant]
  3. COUMADIN [Concomitant]
  4. DEMADEX [Concomitant]
  5. XOPENEX [Concomitant]
  6. XANAX [Concomitant]

REACTIONS (1)
  - HEPATITIS [None]
